FAERS Safety Report 7672251-4 (Version None)
Quarter: 2011Q3

REPORT INFORMATION
  Report Type: 
  Country: None (occurrence: None)
  Receive Date: 20110809
  Receipt Date: 20110727
  Transmission Date: 20111222
  Serious: Yes (Death)
  Sender: FDA-Public Use
  Company Number: US-ELI_LILLY_AND_COMPANY-US201101005012

PATIENT
  Sex: Female
  Weight: 89.796 kg

DRUGS (38)
  1. AMOXICILLIN + CLAVULANATE POTASSIUM [Concomitant]
     Dosage: 1 DF, BID
     Route: 048
     Dates: start: 20110518, end: 20110527
  2. FLOVENT [Concomitant]
     Dosage: 2 DF, BID
     Route: 055
     Dates: start: 20110124
  3. IBUPROFEN [Concomitant]
     Dosage: 800 MG, PRN
     Route: 048
     Dates: start: 20090915
  4. LOSARTAN POTASSIUM [Concomitant]
     Dosage: 100 MG, QD
     Route: 048
     Dates: start: 20090921
  5. FORTEO [Suspect]
     Dosage: 20 UG, QD
     Route: 058
  6. ADVAIR DISKUS 100/50 [Concomitant]
     Dosage: 1 DF, QD
     Route: 055
     Dates: start: 20101202
  7. CALCIUM VIT D [Concomitant]
     Dosage: 1 DF, BID
     Route: 048
     Dates: start: 20100308
  8. CRESTOR [Concomitant]
     Dosage: 20 MG, QD
     Route: 048
     Dates: start: 20100204
  9. FUROSEMIDE [Concomitant]
     Dosage: 40 MG, PRN
     Route: 048
     Dates: start: 20090921
  10. GABAPENTIN [Concomitant]
     Dosage: 300 MG, BID
     Route: 048
     Dates: start: 20090326
  11. SERTRALINE HYDROCHLORIDE [Concomitant]
     Dosage: 100 MG, QD
     Route: 048
     Dates: start: 20090822
  12. ALBUTEROL [Concomitant]
     Dosage: 1 DF, PRN
     Route: 055
     Dates: start: 20100308
  13. KLOR-CON [Concomitant]
     Dosage: 20 MEQ, TID
     Route: 048
     Dates: start: 20110425
  14. LORAZEPAM [Concomitant]
     Dosage: .5 MG, QD
     Route: 048
     Dates: start: 20110118
  15. POTASSIUM CHLORIDE [Concomitant]
     Dosage: 20 MEQ, TID
     Route: 048
     Dates: start: 20090326
  16. SPIRIVA [Concomitant]
     Dosage: 18 UG, QD
     Route: 055
     Dates: start: 20100110
  17. ASPIRIN [Concomitant]
     Dosage: 81 MG, SINGLE
     Dates: start: 20090326
  18. AZITHROMYCIN [Concomitant]
     Dosage: 250 MG, 3/W
     Route: 048
     Dates: start: 20110118
  19. LANTUS [Concomitant]
     Dosage: 70 IU, BID
     Route: 058
     Dates: start: 20100901
  20. NEXIUM [Concomitant]
     Dosage: 40 MG, QD
     Route: 048
     Dates: start: 20100110
  21. NYSTATIN W/TRIAMCINOLONE [Concomitant]
     Dosage: UNK, BID
     Dates: start: 20110325
  22. OMEPRAZOLE [Concomitant]
     Dosage: 40 MG, QD
     Route: 048
     Dates: start: 20100603
  23. ARAVA [Concomitant]
     Dosage: 1 DF, QD
     Dates: start: 20100308
  24. FLUTICASONE PROPIONATE [Concomitant]
     Dosage: 1 DF, BID
     Dates: start: 20110222
  25. METFORMIN HCL [Concomitant]
     Dosage: 1000 MG, QD
     Route: 048
     Dates: start: 20100110
  26. OXYCODONE HCL [Concomitant]
     Indication: PAIN
     Dosage: 1 DF, PRN
     Route: 048
     Dates: start: 20110111
  27. SULFAMETHOXAZOLE [Concomitant]
     Dosage: UNK, 3/W
     Route: 048
     Dates: start: 20110118
  28. DILTIAZEM [Concomitant]
     Dosage: 300 MG, QD
     Route: 048
     Dates: start: 20100203
  29. PROAIR HFA [Concomitant]
     Dosage: UNK, PRN
     Route: 055
     Dates: start: 20110303
  30. FORTEO [Suspect]
     Indication: OSTEOPOROSIS
     Dosage: 20 UG, QD
     Route: 058
     Dates: start: 20090820
  31. HUMALOG [Concomitant]
     Dosage: 70 IU, QID
     Dates: start: 20100920
  32. LEVEMIR [Concomitant]
     Dosage: 70 IU, BID
     Route: 058
     Dates: start: 20110322
  33. METOLAZONE [Concomitant]
     Dosage: 2.5 MG, BID
     Route: 048
     Dates: start: 20100701
  34. PREDNISONE [Concomitant]
     Dosage: 20 MG, QD
     Route: 048
     Dates: start: 20080905
  35. VITAMIN D [Concomitant]
     Dosage: 50000 IU, WEEKLY (1/W)
     Route: 048
     Dates: start: 20100930
  36. BROVANA [Concomitant]
     Dosage: 1 DF, BID
     Route: 055
     Dates: start: 20110118
  37. MECLIZINE HCL [Concomitant]
     Indication: DIZZINESS
     Dosage: 12.5 MG, PRN
     Route: 048
     Dates: start: 20110506
  38. VITAMIN D [Concomitant]
     Dosage: 50000 IU, 2/M
     Route: 048

REACTIONS (1)
  - PULMONARY FIBROSIS [None]
